FAERS Safety Report 6578561-6 (Version None)
Quarter: 2010Q1

REPORT INFORMATION
  Report Type: 
  Country: None (occurrence: None)
  Receive Date: 20100211
  Receipt Date: 20100203
  Transmission Date: 20100710
  Serious: No
  Sender: FDA-Public Use
  Company Number: US-B.I. PHARMACEUTICALS,INC./RIDGEFIELD-2010-BP-01408BP

PATIENT
  Age: 33 Year
  Sex: Male

DRUGS (3)
  1. RANITIDINE [Suspect]
     Indication: DYSPEPSIA
     Dosage: 75 MG
     Route: 048
     Dates: start: 20100101
  2. VESICARE [Concomitant]
     Indication: HYPERTONIC BLADDER
  3. TYLENOL-500 [Concomitant]
     Indication: PAIN
     Route: 054

REACTIONS (1)
  - DRUG INEFFECTIVE [None]
